FAERS Safety Report 4372172-9 (Version None)
Quarter: 2004Q2

REPORT INFORMATION
  Report Type: 
  Country: None (occurrence: None)
  Receive Date: 20040607
  Receipt Date: 20040412
  Transmission Date: 20050107
  Serious: Yes (Other)
  Sender: FDA-Public Use
  Company Number: JP-GLAXOSMITHKLINE-B0329845A

PATIENT
  Age: 50 Year
  Sex: Male

DRUGS (3)
  1. EPIVIR [Suspect]
     Dosage: 300MG PER DAY
     Route: 048
     Dates: start: 20040405
  2. ZERIT [Suspect]
     Dosage: 30MG TWICE PER DAY
     Route: 048
     Dates: start: 20040405
  3. ATAZANAVIR [Suspect]
     Dosage: 400MG PER DAY
     Route: 048
     Dates: start: 20040405

REACTIONS (1)
  - JAUNDICE [None]
